FAERS Safety Report 9253027 (Version 1)
Quarter: 2013Q2

REPORT INFORMATION
  Report Type: Spontaneous
  Country: US (occurrence: US)
  Receive Date: 20130424
  Receipt Date: 20130424
  Transmission Date: 20140414
  Serious: Yes (Other)
  Sender: FDA-Public Use
  Company Number: US-MYLANLABS-2013S1008149

PATIENT
  Age: 63 Year
  Sex: Male

DRUGS (3)
  1. PACLITAXEL [Suspect]
     Indication: NON-SMALL CELL LUNG CANCER STAGE IIIB
     Dosage: 175MG/M2 EVERY 3 WEEKS FOR 6 CYCLES
     Route: 065
  2. CARBOPLATIN [Suspect]
     Indication: NON-SMALL CELL LUNG CANCER STAGE IIIB
     Dosage: AUC = 5 EVERY 3 WEEKS FOR 6 CYCLES
     Route: 065
  3. BEVACIZUMAB [Concomitant]
     Indication: NON-SMALL CELL LUNG CANCER STAGE IIIB
     Dosage: 7.5MG/KG EVERY 3 WEEKS FOR 6 CYCLES
     Route: 065

REACTIONS (1)
  - Colorectal cancer stage III [Recovering/Resolving]
